FAERS Safety Report 15735640 (Version 1)
Quarter: 2018Q4

REPORT INFORMATION
  Report Type: Other
  Country: HR (occurrence: HR)
  Receive Date: 20181218
  Receipt Date: 20181218
  Transmission Date: 20190205
  Serious: Yes (Other)
  Sender: FDA-Public Use
  Company Number: HR-MARINA BIOTECH, INC.-2018MARINA000534

PATIENT

DRUGS (3)
  1. NORPREXANIL [Suspect]
     Active Substance: UNSPECIFIED INGREDIENT
     Indication: PRODUCT USED FOR UNKNOWN INDICATION
     Dosage: 1 (10MG/10MG) TABLET, QD
     Route: 048
     Dates: start: 20180301, end: 2018
  2. NORMABEL [Concomitant]
     Active Substance: DIAZEPAM
     Indication: PRODUCT USED FOR UNKNOWN INDICATION
     Dosage: 2 MG, QD
     Route: 048
  3. EBRANTIL                           /00631801/ [Concomitant]
     Active Substance: URAPIDIL
     Indication: PRODUCT USED FOR UNKNOWN INDICATION
     Dosage: 180 MG, QD
     Route: 048

REACTIONS (31)
  - Alopecia [Unknown]
  - Myalgia [Unknown]
  - Weight decreased [Unknown]
  - Dizziness [Unknown]
  - Hyperhidrosis [Unknown]
  - Tremor [Unknown]
  - Asthenia [Unknown]
  - Sleep disorder [Unknown]
  - Anxiety [Unknown]
  - Arthralgia [Unknown]
  - Malaise [Unknown]
  - Lip exfoliation [Unknown]
  - Pain [Unknown]
  - Tinnitus [Unknown]
  - Vertigo [Unknown]
  - Feeling hot [Unknown]
  - Insomnia [Unknown]
  - Back pain [Unknown]
  - Dry mouth [Unknown]
  - Pollakiuria [Unknown]
  - Headache [Unknown]
  - Musculoskeletal stiffness [Unknown]
  - Confusional state [Unknown]
  - Fatigue [Unknown]
  - Lip swelling [Unknown]
  - Affective disorder [Unknown]
  - Swelling of eyelid [Unknown]
  - Constipation [Unknown]
  - Somnolence [Unknown]
  - Flatulence [Unknown]
  - Swelling face [Unknown]

NARRATIVE: CASE EVENT DATE: 20180401
